FAERS Safety Report 4382091-X (Version None)
Quarter: 2004Q2

REPORT INFORMATION
  Report Type: 
  Country: None (occurrence: None)
  Receive Date: 20040615
  Receipt Date: 20040602
  Transmission Date: 20050107
  Serious: Yes (Death, Hospitalization)
  Sender: FDA-Public Use
  Company Number: 04P-163-0262574-00

PATIENT
  Age: 91 Year
  Sex: Female

DRUGS (17)
  1. HUMIRA [Suspect]
     Indication: RHEUMATOID ARTHRITIS
     Dosage: 40 MG, 1 IN 2 WK, INJECTION
     Dates: start: 20031101
  2. METHOTREXATE [Concomitant]
  3. PREDNISONE [Concomitant]
  4. LEFLUNOMIDE [Concomitant]
  5. SULFASALAZINE [Concomitant]
  6. IRON [Concomitant]
  7. CYANOCOBALAMIN [Concomitant]
  8. ALPRAZOLAM [Concomitant]
  9. FLUOXETINE HYDROCHLORIDE [Concomitant]
  10. OXYBUTYNIN [Concomitant]
  11. AMITRIPTYLINE HYDROCHLORIDE [Concomitant]
  12. VICODIN [Concomitant]
  13. LEVOTHYROXINE SODIUM [Concomitant]
  14. GLUCOSAMINE [Concomitant]
  15. MVI 3 [Concomitant]
  16. CALCIUM WITH VITAMIN D [Concomitant]
  17. DOCUSATE SODIUM [Concomitant]

REACTIONS (2)
  - ANAEMIA [None]
  - PNEUMONIA [None]
